FAERS Safety Report 14539518 (Version 5)
Quarter: 2018Q2

REPORT INFORMATION
  Report Type: Spontaneous
  Country: US (occurrence: US)
  Receive Date: 20180216
  Receipt Date: 20180401
  Transmission Date: 20180711
  Serious: Yes (Death, Life-Threatening, Hospitalization, Other)
  Sender: FDA-Public Use
  Company Number: PHEH2018US006056

PATIENT
  Age: 14 Year
  Sex: Male
  Weight: 95 kg

DRUGS (44)
  1. PEG/L-ASPARAGINASE [Concomitant]
     Active Substance: PEGASPARGASE
     Indication: PRODUCT USED FOR UNKNOWN INDICATION
     Dosage: 2500 IU/M2, FOR 1 DOSE (DAY 9)
     Route: 065
     Dates: start: 20180204
  2. LEVOCARNITINE. [Concomitant]
     Active Substance: LEVOCARNITINE
     Indication: PRODUCT USED FOR UNKNOWN INDICATION
     Route: 065
  3. LACTULOSE. [Concomitant]
     Active Substance: LACTULOSE
     Indication: PRODUCT USED FOR UNKNOWN INDICATION
     Dosage: 30 ML, Q4H
     Route: 048
  4. DEXAMETHASONE. [Concomitant]
     Active Substance: DEXAMETHASONE
     Indication: T-CELL TYPE ACUTE LEUKAEMIA
     Dosage: 10 MG/M2, QD (DAY 1 TO 8)
     Route: 048
     Dates: start: 20180127, end: 20180203
  5. HYDROCORTISONE. [Concomitant]
     Active Substance: HYDROCORTISONE
     Indication: PRODUCT USED FOR UNKNOWN INDICATION
     Dosage: 25 MG, 0.5 ML, 30 ML/HR Q8H
     Route: 042
  6. MORPHINE [Concomitant]
     Active Substance: MORPHINE
     Dosage: 50 MG, Q4H (PRN)
  7. RIFAXIMIN. [Concomitant]
     Active Substance: RIFAXIMIN
     Indication: PRODUCT USED FOR UNKNOWN INDICATION
     Dosage: 1 DF, BID
     Route: 048
  8. URSODIOL. [Concomitant]
     Active Substance: URSODIOL
     Indication: PRODUCT USED FOR UNKNOWN INDICATION
     Dosage: 504 MG, 8.4 ML TID
     Route: 048
  9. TOBRAMYCIN. [Concomitant]
     Active Substance: TOBRAMYCIN
     Indication: PRODUCT USED FOR UNKNOWN INDICATION
     Dosage: 2.5 MG/KG, Q12H
     Route: 065
  10. MITOXANTRONE [Concomitant]
     Active Substance: MITOXANTRONE HYDROCHLORIDE
     Indication: PRODUCT USED FOR UNKNOWN INDICATION
     Dosage: 10 MG/M2, FOR 1 DOSE (DAY 7)
     Route: 065
     Dates: start: 20180202
  11. SALINE [Concomitant]
     Active Substance: SODIUM CHLORIDE
     Dosage: 15 ML, TID
     Route: 065
  12. CHLORHEXIDINE [Concomitant]
     Active Substance: CHLORHEXIDINE
     Indication: PRODUCT USED FOR UNKNOWN INDICATION
     Dosage: MUCOUS MEMBRANE LIQUID 0.018 GM, 15 ML BID
     Route: 065
  13. STERILE WATER [Concomitant]
     Active Substance: WATER
     Indication: PRODUCT USED FOR UNKNOWN INDICATION
     Dosage: 320 ML, 40 ML/HR, NG, Q8H
     Route: 065
  14. EPINEPHRINE. [Concomitant]
     Active Substance: EPINEPHRINE
     Indication: PRODUCT USED FOR UNKNOWN INDICATION
     Dosage: 15 MG, UNK
     Route: 065
  15. ETOPOSIDE. [Concomitant]
     Active Substance: ETOPOSIDE
     Indication: PRODUCT USED FOR UNKNOWN INDICATION
     Route: 065
  16. SALINE [Concomitant]
     Active Substance: SODIUM CHLORIDE
     Indication: ORAL PAIN
     Dosage: ALKALINE SALINE MOUTHRINSE
     Route: 065
  17. LORAZEPAM. [Concomitant]
     Active Substance: LORAZEPAM
     Indication: SEIZURE
     Dosage: 4 MG, 2 ML, 60 ML/HR Q4H, PRN
     Route: 065
  18. MORPHINE [Concomitant]
     Active Substance: MORPHINE
     Indication: PAIN
     Dosage: 2 MG, 05 ML, 120 ML/HR, Q3H, PRN
     Route: 042
  19. PEROXYL [Concomitant]
     Active Substance: HYDROGEN PEROXIDE
     Indication: PRODUCT USED FOR UNKNOWN INDICATION
     Dosage: (MUCOUS MEMBRANE SOLUTIO) 10 ML, Q4H
     Route: 065
  20. VITAMIN A [Concomitant]
     Active Substance: VITAMIN A
     Indication: SKIN DISORDER
     Dosage: UNK UNK, PRN
     Route: 061
  21. VITAMIN D [Concomitant]
     Active Substance: CHOLECALCIFEROL
     Indication: SKIN DISORDER
     Route: 061
  22. ZONISAMIDE. [Concomitant]
     Active Substance: ZONISAMIDE
     Indication: PRODUCT USED FOR UNKNOWN INDICATION
     Dosage: 2 DF, BID
     Route: 048
  23. POTASSIUM CHLORIDE. [Concomitant]
     Active Substance: POTASSIUM CHLORIDE
     Indication: PRODUCT USED FOR UNKNOWN INDICATION
     Route: 065
  24. RANITIDINE. [Concomitant]
     Active Substance: RANITIDINE
     Indication: PRODUCT USED FOR UNKNOWN INDICATION
     Dosage: 150 MG, BID
     Route: 048
  25. LACOSAMIDE. [Concomitant]
     Active Substance: LACOSAMIDE
     Indication: PRODUCT USED FOR UNKNOWN INDICATION
     Dosage: 250 MG, 25 ML, 50 ML/HR, BID
     Route: 042
  26. RASBURICASE [Concomitant]
     Active Substance: RASBURICASE
     Indication: PRODUCT USED FOR UNKNOWN INDICATION
     Route: 065
  27. HUMULIN R [Concomitant]
     Active Substance: INSULIN HUMAN
     Indication: BLOOD INSULIN ABNORMAL
     Dosage: 100 UNITS (0.03 UNITS/KG/HR)+NS 99 ML: 2.85 ML/HR
     Route: 042
  28. KEPPRA [Concomitant]
     Active Substance: LEVETIRACETAM
     Indication: SEIZURE
     Dosage: 2000 MG, 200 ML, 800 ML/HR, Q12H
     Route: 042
  29. SEPTRA [Concomitant]
     Active Substance: SULFAMETHOXAZOLE\TRIMETHOPRIM
     Indication: PRODUCT USED FOR UNKNOWN INDICATION
     Dosage: 20 ML, QD
     Route: 048
  30. PRIVIGEN [Concomitant]
     Active Substance: HUMAN IMMUNOGLOBULIN G
     Indication: PRODUCT USED FOR UNKNOWN INDICATION
     Route: 065
  31. INSULIN HUMAN [Concomitant]
     Active Substance: INSULIN HUMAN
     Indication: PRODUCT USED FOR UNKNOWN INDICATION
     Route: 065
  32. SEVELAMER [Concomitant]
     Active Substance: SEVELAMER
     Indication: PRODUCT USED FOR UNKNOWN INDICATION
     Route: 065
  33. PROTONIX [Concomitant]
     Active Substance: PANTOPRAZOLE SODIUM
     Indication: PRODUCT USED FOR UNKNOWN INDICATION
     Route: 065
  34. VINCRISTINE [Suspect]
     Active Substance: VINCRISTINE
     Indication: T-CELL TYPE ACUTE LEUKAEMIA
     Dosage: 2.25 MG/M2, (DAY 7)
     Route: 042
     Dates: start: 20180202, end: 20180202
  35. HEPARIN [Concomitant]
     Active Substance: HEPARIN SODIUM
     Indication: DEVICE OCCLUSION
     Dosage: 30 U, PRN
     Route: 042
  36. LACRI LUBE [Concomitant]
     Indication: PRODUCT USED FOR UNKNOWN INDICATION
     Dosage: EYES BOTH Q4H
     Route: 047
  37. TPN [Concomitant]
     Active Substance: AMINO ACIDS\DEXTROSE\ELECTROLYTES NOS\SOYBEAN OIL
     Indication: PRODUCT USED FOR UNKNOWN INDICATION
     Route: 065
  38. SMZ-TMP [Concomitant]
     Active Substance: SULFAMETHOXAZOLE\TRIMETHOPRIM
     Indication: PRODUCT USED FOR UNKNOWN INDICATION
     Dosage: UNK
     Route: 065
  39. VASOPRESSIN. [Concomitant]
     Active Substance: VASOPRESSIN
     Indication: PRODUCT USED FOR UNKNOWN INDICATION
     Route: 065
  40. PANOBINOSTAT [Suspect]
     Active Substance: PANOBINOSTAT
     Indication: T-CELL TYPE ACUTE LEUKAEMIA
     Dosage: 24 MG/M2, (DAY 2, 4, 6)
     Route: 048
     Dates: start: 20180128, end: 20180201
  41. FUROSEMIDE. [Concomitant]
     Active Substance: FUROSEMIDE
     Indication: PRODUCT USED FOR UNKNOWN INDICATION
     Dosage: 0.3 MG/KG/HR
     Route: 065
  42. NOREPINEPHRINE. [Concomitant]
     Active Substance: NOREPINEPHRINE
     Indication: PRODUCT USED FOR UNKNOWN INDICATION
     Route: 065
  43. ALLOPURINOL. [Concomitant]
     Active Substance: ALLOPURINOL
     Indication: PRODUCT USED FOR UNKNOWN INDICATION
     Route: 065
  44. MIRALAX [Concomitant]
     Active Substance: POLYETHYLENE GLYCOL 3350
     Indication: PRODUCT USED FOR UNKNOWN INDICATION
     Dosage: 17 G, QD
     Route: 048

REACTIONS (69)
  - Blast cell count increased [Unknown]
  - Klebsiella bacteraemia [Unknown]
  - Pachymeningitis [Unknown]
  - Ocular hyperaemia [Unknown]
  - Acute kidney injury [Unknown]
  - Jaundice [Unknown]
  - Ascites [Unknown]
  - Sinus disorder [Unknown]
  - Poikilocytosis [Unknown]
  - Anaemia [Unknown]
  - Haemorrhage [Unknown]
  - Hyperbilirubinaemia [Unknown]
  - Ocular icterus [Unknown]
  - Neutropenia [Unknown]
  - Oedema [Unknown]
  - Subdural effusion [Unknown]
  - Hypernatraemia [Unknown]
  - Obstructive airways disorder [Unknown]
  - Cough [Unknown]
  - Acute lymphocytic leukaemia recurrent [Unknown]
  - Cerebral infarction [Unknown]
  - Thrombocytopenia [Unknown]
  - Status epilepticus [Unknown]
  - Hypochromasia [Unknown]
  - Blood fibrinogen increased [Unknown]
  - Abdominal discomfort [Unknown]
  - Sedation [Unknown]
  - Ammonia increased [Unknown]
  - Hypocalcaemia [Unknown]
  - Hypotension [Unknown]
  - Multiple organ dysfunction syndrome [Fatal]
  - Blood pressure abnormal [Unknown]
  - Anion gap increased [Unknown]
  - Contusion [Unknown]
  - Mental status changes [Unknown]
  - Petechiae [Unknown]
  - Sepsis [Fatal]
  - Septic shock [Not Recovered/Not Resolved]
  - Encephalopathy [Unknown]
  - Encephalitis [Unknown]
  - Scleral oedema [Unknown]
  - White blood cell count decreased [Unknown]
  - Prothrombin time prolonged [Unknown]
  - Restrictive pulmonary disease [Unknown]
  - Pleural effusion [Unknown]
  - Hyperglycaemia [Unknown]
  - Chills [Unknown]
  - Diarrhoea [Unknown]
  - Abdominal distension [Unknown]
  - Pneumonia klebsiella [Unknown]
  - Pyrexia [Unknown]
  - Pancytopenia [Unknown]
  - Seizure [Unknown]
  - Arrhythmia [Unknown]
  - Mastoid effusion [Unknown]
  - Red blood cell count decreased [Unknown]
  - Anisochromia [Unknown]
  - Hyperalbuminaemia [Unknown]
  - Purpura [Unknown]
  - Candida infection [Unknown]
  - Asthenia [Unknown]
  - Meningitis bacterial [Unknown]
  - Lacrimation increased [Unknown]
  - Lactic acidosis [Unknown]
  - Heart rate increased [Unknown]
  - Diastolic dysfunction [Unknown]
  - Sinus tachycardia [Unknown]
  - Blood urea increased [Unknown]
  - Hyponatraemia [Unknown]

NARRATIVE: CASE EVENT DATE: 20180205
